FAERS Safety Report 18915142 (Version 2)
Quarter: 2021Q1

REPORT INFORMATION
  Report Type: Spontaneous
  Country: US (occurrence: US)
  Receive Date: 20210219
  Receipt Date: 20210219
  Transmission Date: 20210420
  Serious: Yes (Other)
  Sender: FDA-Public Use
  Company Number: US-PFIZER INC-2021124121

PATIENT
  Age: 75 Year
  Sex: Female

DRUGS (36)
  1. BENZTROPINE [BENZATROPINE] [Concomitant]
     Active Substance: BENZTROPINE
     Indication: PARKINSONISM
  2. QUETIAPINE. [Concomitant]
     Active Substance: QUETIAPINE
     Indication: DYSKINESIA
     Dosage: 50 MG
     Dates: start: 201101
  3. TRAZODONE [Concomitant]
     Active Substance: TRAZODONE HYDROCHLORIDE
     Indication: TREMOR
  4. AMANTADINE. [Concomitant]
     Active Substance: AMANTADINE HYDROCHLORIDE
     Indication: PARKINSONISM
  5. AMANTADINE. [Concomitant]
     Active Substance: AMANTADINE HYDROCHLORIDE
     Indication: TREMOR
  6. SINEMET [Concomitant]
     Active Substance: CARBIDOPA\LEVODOPA
     Indication: TREMOR
  7. THIORIDAZINE [Concomitant]
     Active Substance: THIORIDAZINE
     Indication: SCHIZOPHRENIA
     Dosage: UNK
     Dates: start: 1980, end: 2010
  8. QUETIAPINE. [Concomitant]
     Active Substance: QUETIAPINE
     Indication: PARKINSONISM
     Dosage: 200 MG, 1X/DAY (NIGHTLY)
     Dates: start: 201112
  9. TETRABENAZINE. [Concomitant]
     Active Substance: TETRABENAZINE
     Indication: TREMOR
     Dosage: 12.5 MG, 2X/DAY
     Dates: start: 2012
  10. PRIMIDONE. [Concomitant]
     Active Substance: PRIMIDONE
     Indication: PARKINSONISM
  11. TETRABENAZINE. [Concomitant]
     Active Substance: TETRABENAZINE
     Indication: PARKINSONISM
     Dosage: 12.5 MG, 3X/DAY
     Dates: start: 201112
  12. PROPANOLOL HCL [Suspect]
     Active Substance: PROPRANOLOL HYDROCHLORIDE
     Dosage: 20 MG, 3X/DAY
     Dates: start: 2015
  13. BENZTROPINE [BENZATROPINE] [Concomitant]
     Active Substance: BENZTROPINE
     Indication: TREMOR
  14. LIDOCAINE. [Concomitant]
     Active Substance: LIDOCAINE
     Indication: DYSKINESIA
     Dosage: UNK
     Route: 048
  15. LIDOCAINE. [Concomitant]
     Active Substance: LIDOCAINE
     Indication: PARKINSONISM
  16. SINEMET [Concomitant]
     Active Substance: CARBIDOPA\LEVODOPA
     Indication: PARKINSONISM
  17. PRAMIPEXOLE. [Concomitant]
     Active Substance: PRAMIPEXOLE
     Indication: DYSKINESIA
     Dosage: UNK
     Dates: start: 2015
  18. BENZTROPINE [BENZATROPINE] [Concomitant]
     Active Substance: BENZTROPINE
     Indication: DYSKINESIA
     Dosage: UNK
  19. TETRABENAZINE. [Concomitant]
     Active Substance: TETRABENAZINE
     Indication: DYSKINESIA
     Dosage: 12.5 MG, 2X/DAY
     Dates: start: 201106
  20. TETRABENAZINE. [Concomitant]
     Active Substance: TETRABENAZINE
     Dosage: 25 MG, 2X/DAY
     Dates: start: 2017
  21. AMANTADINE. [Concomitant]
     Active Substance: AMANTADINE HYDROCHLORIDE
     Indication: DYSKINESIA
     Dosage: UNK
     Dates: start: 2015
  22. SINEMET [Concomitant]
     Active Substance: CARBIDOPA\LEVODOPA
     Indication: DYSKINESIA
     Dosage: UNK
     Dates: start: 2015
  23. PROPANOLOL HCL [Suspect]
     Active Substance: PROPRANOLOL HYDROCHLORIDE
     Indication: TREMOR
     Dosage: 10 MG, 2X/DAY
  24. TETRABENAZINE. [Concomitant]
     Active Substance: TETRABENAZINE
     Dosage: 25 MG, 3X/DAY (INCREASED)
     Dates: start: 2015
  25. FLUOXETINE [Concomitant]
     Active Substance: FLUOXETINE HYDROCHLORIDE
     Indication: PARKINSONISM
     Dosage: UNK (TAPERING OFF)
     Dates: start: 2015
  26. TRAZODONE [Concomitant]
     Active Substance: TRAZODONE HYDROCHLORIDE
     Indication: DYSKINESIA
     Dosage: 100 MG, 1X/DAY (NIGHTLY)
     Dates: start: 201112
  27. PRAMIPEXOLE. [Concomitant]
     Active Substance: PRAMIPEXOLE
     Indication: PARKINSONISM
  28. PRAMIPEXOLE. [Concomitant]
     Active Substance: PRAMIPEXOLE
     Indication: TREMOR
  29. PRIMIDONE. [Concomitant]
     Active Substance: PRIMIDONE
     Indication: TREMOR
  30. TRAZODONE [Concomitant]
     Active Substance: TRAZODONE HYDROCHLORIDE
     Indication: PARKINSONISM
  31. CITALOPRAM [Concomitant]
     Active Substance: CITALOPRAM HYDROBROMIDE
     Indication: SCHIZOPHRENIA
     Dosage: UNK
     Dates: start: 1980, end: 2010
  32. LIDOCAINE. [Concomitant]
     Active Substance: LIDOCAINE
     Indication: TREMOR
  33. QUETIAPINE. [Concomitant]
     Active Substance: QUETIAPINE
     Indication: TREMOR
     Dosage: 100 MG
     Dates: start: 2015
  34. FLUOXETINE [Concomitant]
     Active Substance: FLUOXETINE HYDROCHLORIDE
     Indication: DYSKINESIA
     Dosage: 50 MG
     Dates: start: 201112
  35. FLUOXETINE [Concomitant]
     Active Substance: FLUOXETINE HYDROCHLORIDE
     Indication: TREMOR
  36. PRIMIDONE. [Concomitant]
     Active Substance: PRIMIDONE
     Indication: DYSKINESIA
     Dosage: UNK
     Dates: start: 2015

REACTIONS (2)
  - Depression [Unknown]
  - Drug ineffective [Recovering/Resolving]

NARRATIVE: CASE EVENT DATE: 2012
